FAERS Safety Report 23798414 (Version 2)
Quarter: 2025Q3

REPORT INFORMATION
  Report Type: Spontaneous
  Country: KR (occurrence: KR)
  Receive Date: 20240430
  Receipt Date: 20250708
  Transmission Date: 20251021
  Serious: Yes (Hospitalization, Other)
  Sender: GLENMARK
  Company Number: KR-GLENMARK PHARMACEUTICALS-2024GMK088313

PATIENT
  Age: 44 Year
  Sex: Female
  Weight: 71 kg

DRUGS (14)
  1. RYALTRIS [Suspect]
     Active Substance: MOMETASONE FUROATE MONOHYDRATE\OLOPATADINE HYDROCHLORIDE
     Indication: Seasonal allergy
     Dosage: 2 SPRAYS PER NOSTRIL, QD (DURATION: 56 DAYS)
     Route: 045
     Dates: start: 20231107
  2. RYALTRIS [Suspect]
     Active Substance: MOMETASONE FUROATE MONOHYDRATE\OLOPATADINE HYDROCHLORIDE
  3. BUDESONIDE\FORMOTEROL [Concomitant]
     Active Substance: BUDESONIDE\FORMOTEROL
     Indication: Asthma
     Dosage: 2 PUFFS, BID, (2 PUFFS/2 TIMES PER DAY)
     Route: 055
     Dates: start: 20210129
  4. SINGULAIR [Concomitant]
     Active Substance: MONTELUKAST SODIUM
     Indication: Asthma
     Dosage: 1 DOSAGE FORM, OD
     Route: 048
     Dates: start: 20190716
  5. VENTOLIN [Concomitant]
     Active Substance: ALBUTEROL SULFATE
     Indication: Asthma
     Route: 055
     Dates: start: 20161031
  6. METHYLPREDNISOLONE ACEPONATE [Concomitant]
     Active Substance: METHYLPREDNISOLONE ACEPONATE
     Indication: Dermatitis contact
     Route: 062
     Dates: start: 20211224
  7. LACTICARE HC [HYDROCORTISONE] [Concomitant]
     Indication: Dermatitis contact
     Route: 062
     Dates: start: 20200805
  8. BC CODEINE PHOSPHATE [Concomitant]
     Indication: Cough
     Route: 048
     Dates: start: 20200729
  9. NOCOTINE S [Concomitant]
     Indication: Smoking cessation therapy
     Dosage: 1 DOSAGE FORM, BID
     Route: 048
     Dates: start: 20230917, end: 20231127
  10. ISOTRETINOIN [Concomitant]
     Active Substance: ISOTRETINOIN
     Indication: Asthma
     Route: 048
     Dates: start: 20200422
  11. SAMA LIDOMAX [Concomitant]
     Indication: Dermatitis contact
     Route: 062
     Dates: start: 20231107
  12. SCD MAGNESIUM OXIDE [Concomitant]
     Indication: Laxative supportive care
     Route: 048
     Dates: start: 20210827
  13. ALPADAY OPHTHALMIC SOLUTION 0.2% [Concomitant]
     Indication: Conjunctivitis allergic
     Route: 047
     Dates: start: 20190503
  14. GCFLU QUADRIVALENT [Concomitant]
     Indication: Influenza immunisation
     Route: 058
     Dates: start: 20231107, end: 20231107

REACTIONS (1)
  - Breast cancer [Recovering/Resolving]

NARRATIVE: CASE EVENT DATE: 20231123
